FAERS Safety Report 4306874-7 (Version None)
Quarter: 2004Q1

REPORT INFORMATION
  Report Type: 
  Country: None (occurrence: None)
  Receive Date: 20040227
  Receipt Date: 20040105
  Transmission Date: 20041129
  Serious: Yes (Hospitalization)
  Sender: FDA-Public Use
  Company Number: FR-GLAXOSMITHKLINE-B0318941A

PATIENT
  Age: 62 Year
  Sex: Female
  Weight: 54 kg

DRUGS (4)
  1. DERMOVAL [Suspect]
     Indication: PSORIASIS
     Route: 061
  2. CELESTAMINE TAB [Suspect]
     Indication: URTICARIA
     Dosage: 1UD PER DAY
     Route: 048
  3. VASELINE + SALICYLATE [Concomitant]
     Indication: PSORIASIS
  4. DIPROSONE LOTION [Concomitant]
     Indication: PSORIASIS

REACTIONS (4)
  - ADRENAL INSUFFICIENCY [None]
  - ANKLE FRACTURE [None]
  - DELIRIUM TREMENS [None]
  - DIABETES MELLITUS [None]
